FAERS Safety Report 9541455 (Version 1)
Quarter: 2013Q3

REPORT INFORMATION
  Report Type: Spontaneous
  Country: US (occurrence: None)
  Receive Date: 20130919
  Receipt Date: 20130919
  Transmission Date: 20140515
  Serious: Yes (Other)
  Sender: FDA-Public Use
  Company Number: None

PATIENT
  Age: 75 Year
  Sex: Female

DRUGS (1)
  1. AFINITOR 5MG NOVARTIS [Suspect]
     Indication: BREAST CANCER METASTATIC
     Dosage: 5MG QD PO
     Route: 048
     Dates: start: 20130408, end: 20130917

REACTIONS (4)
  - Fatigue [None]
  - Stomatitis [None]
  - Oedema [None]
  - Diabetes mellitus [None]
